FAERS Safety Report 4345570-7 (Version None)
Quarter: 2004Q1

REPORT INFORMATION
  Report Type: 
  Country: None (occurrence: None)
  Receive Date: 20040325
  Receipt Date: 20040116
  Transmission Date: 20041129
  Serious: No
  Sender: FDA-Public Use
  Company Number: USA040156109

PATIENT
  Age: 59 Year
  Sex: Female

DRUGS (3)
  1. FORTEO [Suspect]
  2. MULTI-VITAMIN [Concomitant]
  3. CALCIUM [Concomitant]

REACTIONS (2)
  - FATIGUE [None]
  - MYALGIA [None]
